FAERS Safety Report 15111019 (Version 2)
Quarter: 2018Q3

REPORT INFORMATION
  Report Type: Spontaneous
  Country: US (occurrence: US)
  Receive Date: 20180705
  Receipt Date: 20180806
  Transmission Date: 20181010
  Serious: Yes (Other)
  Sender: FDA-Public Use
  Company Number: US-SA-2018SA168392

PATIENT
  Age: 28 Year
  Sex: Female
  Weight: 86 kg

DRUGS (6)
  1. TAXOTERE [Suspect]
     Active Substance: DOCETAXEL
     Dosage: 70 UNK, QW
     Route: 042
     Dates: start: 20070309, end: 20070309
  2. NEOSAR [Concomitant]
     Active Substance: CYCLOPHOSPHAMIDE
  3. EPIRUBICIN [Concomitant]
     Active Substance: EPIRUBICIN
  4. TAXOTERE [Suspect]
     Active Substance: DOCETAXEL
     Indication: BREAST CANCER
     Dosage: 70 UNK, QW
     Route: 042
     Dates: start: 20061127, end: 20061127
  5. TAXOL [Concomitant]
     Active Substance: PACLITAXEL
  6. DOXORUBICIN [Concomitant]
     Active Substance: DOXORUBICIN

REACTIONS (1)
  - Alopecia [Not Recovered/Not Resolved]

NARRATIVE: CASE EVENT DATE: 20040810
